FAERS Safety Report 10230943 (Version 1)
Quarter: 2014Q2

REPORT INFORMATION
  Report Type: Spontaneous
  Country: CA (occurrence: CA)
  Receive Date: 20140611
  Receipt Date: 20140611
  Transmission Date: 20141212
  Serious: Yes (Other)
  Sender: FDA-Public Use
  Company Number: CA-PFIZER INC-2014155702

PATIENT
  Age: 75 Year
  Sex: Male

DRUGS (14)
  1. REVATIO [Suspect]
     Indication: PULMONARY ARTERIAL HYPERTENSION
     Dosage: 20 MG
     Route: 048
     Dates: start: 20131010
  2. RIVA-OXAZEPAM [Concomitant]
     Dosage: 30 MG, AT BEDTIME
  3. XALACOM [Concomitant]
     Dosage: UNK
     Route: 047
  4. APO-BRIMONIDINE [Concomitant]
     Dosage: UNK
     Route: 047
  5. SANDOZ GLYBURIDE [Concomitant]
     Dosage: 2.5 MG (1 CAPLET), 1X/DAY (IN MORNING)
  6. ASAPHEN [Concomitant]
     Dosage: 80 MG (1 CAPLET), 1X/DAY (IN MORNING)
  7. SANDOZ BISOPROLOL [Concomitant]
     Dosage: UNK
  8. SANDOZ VALSARTAN [Concomitant]
     Dosage: 320 MG (1 TABLET), UNK
  9. PMS-SIMVASTATIN [Concomitant]
     Dosage: 40 MG (1 TABLET), 1X/DAY (IN THE EVENING)
  10. ONGLYZA [Concomitant]
     Dosage: 5 MG (1 TABLET), 1X/DAY (IN MORNING)
  11. PMS-FUROSEMIDE [Concomitant]
     Dosage: 1 DF (TABLET), IN AM AND AT DINNER
  12. PMS-FERROUS SULFATE [Concomitant]
     Dosage: UNK, 2X/DAY (AM AND AT DINNER)
  13. SANDOZ PANTOPRAZOLE [Concomitant]
     Dosage: 40 MG (1 TABLET), 1X/DAY (IN AM)
  14. RIVA-METFORMIN [Concomitant]
     Dosage: 500 MG, 3X/DAY (MORNING, DINNER AND AT NIGHT)

REACTIONS (1)
  - Hypoxia [Recovered/Resolved]
